FAERS Safety Report 7326098-9 (Version None)
Quarter: 2011Q1

REPORT INFORMATION
  Report Type: 
  Country: None (occurrence: None)
  Receive Date: 20110302
  Receipt Date: 20101101
  Transmission Date: 20110831
  Serious: No
  Sender: FDA-Public Use
  Company Number: US-BAYER-201023351BCC

PATIENT
  Sex: Female
  Weight: 80 kg

DRUGS (8)
  1. CITRACAL PETITES [Suspect]
     Indication: VITAMIN SUPPLEMENTATION
     Dosage: DAILY DOSE 5 DF
     Route: 048
     Dates: start: 20101026, end: 20101028
  2. PYRIDOSTIGMINE BROMIDE [Concomitant]
     Dosage: 60 MG, TID
  3. AMLODIPINE BESYLATE AND BENAZEPRIL HCL [Concomitant]
     Dosage: UNK UNK, QD
  4. TRIAMTERENE AND HYDROCHLOROTHIAZIDE [Concomitant]
  5. ONE A DAY ENERGY [Concomitant]
     Indication: VITAMIN SUPPLEMENTATION
  6. PREDNISONE [Concomitant]
     Dosage: 20 MG, BID
  7. PREVACID [Concomitant]
     Dosage: DAILY DOSE 40 MG
  8. CITRACAL PETITES [Suspect]
     Dosage: DAILY DOSE 2 DF
     Dates: start: 20101029, end: 20101029

REACTIONS (2)
  - OVERDOSE [None]
  - ACNE [None]
